FAERS Safety Report 10020425 (Version 1)
Quarter: 2014Q1

REPORT INFORMATION
  Report Type: Spontaneous
  Country: US (occurrence: US)
  Receive Date: 20140319
  Receipt Date: 20140319
  Transmission Date: 20141002
  Serious: No
  Sender: FDA-Public Use
  Company Number: US-BIOGENIDEC-2014BI022514

PATIENT
  Age: 39 Year
  Sex: Male

DRUGS (4)
  1. TECFIDERA [Suspect]
     Indication: MULTIPLE SCLEROSIS
     Route: 048
  2. FISH OIL [Concomitant]
  3. ONE-A-DAY MENS [Concomitant]
  4. VITAMIN B-12 [Concomitant]

REACTIONS (1)
  - Dry skin [Unknown]
